FAERS Safety Report 21162998 (Version 1)
Quarter: 2022Q3

REPORT INFORMATION
  Report Type: Spontaneous
  Country: US (occurrence: US)
  Receive Date: 20220802
  Receipt Date: 20220802
  Transmission Date: 20221026
  Serious: Yes (Other)
  Sender: FDA-Public Use
  Company Number: US-SA-SAC20220801001652

PATIENT
  Age: 25 Year
  Sex: Female

DRUGS (1)
  1. ZANTAC [Suspect]
     Active Substance: RANITIDINE HYDROCHLORIDE
     Indication: Gastrooesophageal reflux disease
     Dosage: UNKNOWN AT THIS TIME FREQUENCY: DAILY
     Dates: start: 201101, end: 201910

REACTIONS (2)
  - Bladder cancer [Unknown]
  - Thyroid cancer stage I [Unknown]

NARRATIVE: CASE EVENT DATE: 20190601
